FAERS Safety Report 15668634 (Version 1)
Quarter: 2018Q4

REPORT INFORMATION
  Report Type: Spontaneous
  Country: US (occurrence: US)
  Receive Date: 20181129
  Receipt Date: 20181129
  Transmission Date: 20190205
  Serious: No
  Sender: FDA-Public Use
  Company Number: US-009507513-1811USA000096

PATIENT
  Age: 29 Year
  Sex: Female
  Weight: 62.59 kg

DRUGS (1)
  1. NEXPLANON [Suspect]
     Active Substance: ETONOGESTREL
     Indication: CONTRACEPTION
     Dosage: ONE IMPLANT EVERY 3 YEARS
     Route: 059
     Dates: start: 201502, end: 20181029

REACTIONS (6)
  - Product quality issue [Recovered/Resolved]
  - Incorrect product administration duration [Unknown]
  - Menstruation irregular [Recovered/Resolved]
  - Implant site scar [Recovered/Resolved]
  - Stab wound [Recovered/Resolved]
  - Device breakage [Recovered/Resolved]

NARRATIVE: CASE EVENT DATE: 201802
